FAERS Safety Report 15599086 (Version 4)
Quarter: 2019Q2

REPORT INFORMATION
  Report Type: Spontaneous
  Country: US (occurrence: US)
  Receive Date: 20181108
  Receipt Date: 20190520
  Transmission Date: 20190711
  Serious: No
  Sender: FDA-Public Use
  Company Number: US-PFIZER INC-2018424644

PATIENT
  Age: 68 Year
  Sex: Male

DRUGS (2)
  1. DETROL LA [Suspect]
     Active Substance: TOLTERODINE TARTRATE
     Indication: PROSTATIC DISORDER
     Dosage: 4 MG, UNK
  2. DETROL LA [Suspect]
     Active Substance: TOLTERODINE TARTRATE
     Dosage: UNK, ALTERNATE DAY

REACTIONS (9)
  - Prostatitis [Unknown]
  - Depression [Unknown]
  - Off label use [Unknown]
  - Product use in unapproved indication [Unknown]
  - Benign prostatic hyperplasia [Unknown]
  - Stress [Unknown]
  - Intentional product use issue [Unknown]
  - Anxiety [Unknown]
  - Emotional disorder [Unknown]
